FAERS Safety Report 10425933 (Version 3)
Quarter: 2014Q3

REPORT INFORMATION
  Report Type: Report from Study
  Country: AU (occurrence: AU)
  Receive Date: 20140903
  Receipt Date: 20140911
  Transmission Date: 20150326
  Serious: No
  Sender: FDA-Public Use
  Company Number: AU-BIOGENIDEC-2014BI049395

PATIENT
  Age: 41 Year
  Sex: Female

DRUGS (2)
  1. AVONEX [Suspect]
     Active Substance: INTERFERON BETA-1A
     Indication: MULTIPLE SCLEROSIS
     Route: 030
     Dates: start: 20140516
  2. IRON [Concomitant]
     Active Substance: IRON
     Route: 042

REACTIONS (20)
  - Diarrhoea [Unknown]
  - Injection site pain [Recovered/Resolved]
  - Muscle spasms [Unknown]
  - Malaise [Unknown]
  - Depressed mood [Unknown]
  - Weight decreased [Unknown]
  - Anxiety [Unknown]
  - Fatigue [Unknown]
  - Viral infection [Unknown]
  - Feeling abnormal [Unknown]
  - Pyrexia [Unknown]
  - Injection site bruising [Recovered/Resolved]
  - Mobility decreased [Unknown]
  - Stress [Unknown]
  - Influenza like illness [Recovered/Resolved]
  - Affect lability [Unknown]
  - Periorbital contusion [Unknown]
  - Hypophagia [Unknown]
  - Thermal burn [Unknown]
  - Fall [Recovered/Resolved]

NARRATIVE: CASE EVENT DATE: 2014
